FAERS Safety Report 4993416-6 (Version None)
Quarter: 2006Q2

REPORT INFORMATION
  Report Type: 
  Country: None (occurrence: None)
  Receive Date: 20060505
  Receipt Date: 20060425
  Transmission Date: 20061013
  Serious: Yes (Other)
  Sender: FDA-Public Use
  Company Number: PHBS2006US06209

PATIENT
  Age: 85 Year
  Sex: Female

DRUGS (3)
  1. HYDRALAZINE [Suspect]
  2. DILTIAZEM [Concomitant]
  3. SERTRALINE [Concomitant]

REACTIONS (6)
  - BONE DISORDER [None]
  - CEREBRAL ISCHAEMIA [None]
  - EXOSTOSIS [None]
  - EXTRAPYRAMIDAL DISORDER [None]
  - GAIT DISTURBANCE [None]
  - MEMORY IMPAIRMENT [None]
